FAERS Safety Report 6404660-5 (Version None)
Quarter: 2009Q4

REPORT INFORMATION
  Report Type: 
  Country: None (occurrence: None)
  Receive Date: 20091016
  Receipt Date: 20091006
  Transmission Date: 20100525
  Serious: Yes (Hospitalization)
  Sender: FDA-Public Use
  Company Number: US-CELGENEUS-163-21880-09100672

PATIENT
  Sex: Female

DRUGS (2)
  1. REVLIMID [Suspect]
     Indication: MULTIPLE MYELOMA
     Route: 048
     Dates: start: 20090723, end: 20090908
  2. REVLIMID [Suspect]
     Route: 048
     Dates: start: 20090911

REACTIONS (3)
  - CARDIAC ABLATION [None]
  - HISTOPLASMOSIS [None]
  - PNEUMONIA [None]
